FAERS Safety Report 21385330 (Version 5)
Quarter: 2022Q4

REPORT INFORMATION
  Report Type: Spontaneous
  Country: DE (occurrence: DE)
  Receive Date: 20220928
  Receipt Date: 20221029
  Transmission Date: 20230112
  Serious: Yes (Death, Life-Threatening, Other)
  Sender: FDA-Public Use
  Company Number: DE-PFIZER INC-PV202200060649

PATIENT
  Age: 60 Year
  Sex: Female

DRUGS (11)
  1. LINEZOLID [Suspect]
     Active Substance: LINEZOLID
     Indication: Anti-infective therapy
     Dosage: UNK
     Route: 065
     Dates: start: 2022
  2. MEROPENEM [Suspect]
     Active Substance: MEROPENEM
     Indication: Anti-infective therapy
     Dosage: UNK
     Route: 065
     Dates: start: 2022
  3. PIPERACILLIN AND TAZOBACTAM [Suspect]
     Active Substance: PIPERACILLIN SODIUM\TAZOBACTAM SODIUM
     Indication: Anti-infective therapy
     Dosage: UNK
     Route: 065
     Dates: start: 2022
  4. AMPICILLIN [Suspect]
     Active Substance: AMPICILLIN
     Indication: Anti-infective therapy
     Dosage: UNK
     Route: 065
     Dates: start: 2022
  5. CEFOTAXIME [Suspect]
     Active Substance: CEFOTAXIME SODIUM
     Indication: Anti-infective therapy
     Dosage: UNK
     Route: 065
     Dates: start: 2022
  6. CLINDAMYCIN HYDROCHLORIDE [Suspect]
     Active Substance: CLINDAMYCIN HYDROCHLORIDE
     Indication: Anti-infective therapy
     Dosage: UNK
     Route: 065
     Dates: start: 2022
  7. COLISTIN [Suspect]
     Active Substance: COLISTIN
     Indication: Anti-infective therapy
     Dosage: UNK
     Route: 065
     Dates: start: 2022
  8. GENTAMICIN [Suspect]
     Active Substance: GENTAMICIN
     Indication: Anti-infective therapy
     Dosage: UNK
     Route: 065
     Dates: start: 2022
  9. IMIPENEM AND CILASTATIN [Suspect]
     Active Substance: CILASTATIN SODIUM\IMIPENEM
     Indication: Anti-infective therapy
     Dosage: UNK
     Route: 065
     Dates: start: 2022
  10. COLISTIMETHATE SODIUM [Suspect]
     Active Substance: COLISTIMETHATE SODIUM
     Indication: Bacterial infection
     Dosage: UNK
     Route: 065
     Dates: start: 2022
  11. COLISTIMETHATE SODIUM [Suspect]
     Active Substance: COLISTIMETHATE SODIUM
     Indication: Sepsis

REACTIONS (4)
  - Septic shock [Fatal]
  - Multiple organ dysfunction syndrome [Fatal]
  - Infection [Fatal]
  - Therapy non-responder [Unknown]

NARRATIVE: CASE EVENT DATE: 20220101
